FAERS Safety Report 6988500-1 (Version None)
Quarter: 2010Q3

REPORT INFORMATION
  Report Type: 
  Country: None (occurrence: None)
  Receive Date: 20100916
  Receipt Date: 20100909
  Transmission Date: 20110219
  Serious: Yes (Death, Life-Threatening, Hospitalization, Other)
  Sender: FDA-Public Use
  Company Number: PHHO2010NL09032

PATIENT
  Sex: Male
  Weight: 54.3 kg

DRUGS (31)
  1. ACZ885 ACZ+ [Suspect]
     Indication: JUVENILE ARTHRITIS
     Dosage: 4MG / KG (230 MG)
     Route: 058
     Dates: start: 20100412, end: 20100609
  2. METHOTREXATE [Concomitant]
  3. INDOMETHACIN [Concomitant]
  4. PREDNISONE [Concomitant]
     Indication: HISTIOCYTOSIS HAEMATOPHAGIC
  5. ANEXATE [Concomitant]
  6. PARAFFIN [Concomitant]
  7. BETNELAN [Concomitant]
  8. CALCICHEW [Concomitant]
  9. DAKTACORT [Concomitant]
  10. DI-ADRESON [Concomitant]
  11. EMTHEXATE [Concomitant]
  12. ERYTHROCINE [Concomitant]
  13. FENTANYL CITRATE [Concomitant]
  14. FOLIC ACID [Concomitant]
  15. CEFTAZIDIME [Concomitant]
  16. FUROSEMIDE [Concomitant]
  17. INDOMETHACIN SODIUM [Concomitant]
  18. POTASSIUM CHLORIDE [Concomitant]
  19. PRILOSEC [Concomitant]
  20. METHOTREXATE SODIUM [Concomitant]
  21. METOJECT [Concomitant]
  22. MIDAZOLAM HCL [Concomitant]
  23. NALOXONE [Concomitant]
  24. OMEPRAZOLE [Concomitant]
  25. PERFALGAN [Concomitant]
  26. PREDNISOLON [Concomitant]
  27. SILKIS [Concomitant]
  28. SPIRONOLACTONE [Concomitant]
  29. CLEMASTINE FUMARATE [Concomitant]
  30. CETOMACROGOL [Concomitant]
  31. ZITHROMAX [Concomitant]

REACTIONS (27)
  - ABNORMAL BEHAVIOUR [None]
  - ASCITES [None]
  - ATELECTASIS [None]
  - COMPUTERISED TOMOGRAM ABNORMAL [None]
  - CONVULSION [None]
  - DECREASED APPETITE [None]
  - DEPRESSED LEVEL OF CONSCIOUSNESS [None]
  - DISORIENTATION [None]
  - ELECTROENCEPHALOGRAM ABNORMAL [None]
  - HEART RATE DECREASED [None]
  - HEPATOMEGALY [None]
  - HISTIOCYTOSIS HAEMATOPHAGIC [None]
  - HYPOTENSION [None]
  - INTERSTITIAL LUNG DISEASE [None]
  - MALAISE [None]
  - MECHANICAL VENTILATION [None]
  - MEDIASTINAL SHIFT [None]
  - MICTURITION FREQUENCY DECREASED [None]
  - PULMONARY HYPERTENSION [None]
  - PYREXIA [None]
  - RESPIRATORY FAILURE [None]
  - RIGHT VENTRICULAR HYPERTROPHY [None]
  - SOMNOLENCE [None]
  - SPLENOMEGALY [None]
  - TACHYPNOEA [None]
  - THROMBOCYTOPENIA [None]
  - VENOOCCLUSIVE DISEASE [None]
